FAERS Safety Report 8477862-4 (Version None)
Quarter: 2012Q2

REPORT INFORMATION
  Report Type: 
  Country: None (occurrence: None)
  Receive Date: 20120629
  Receipt Date: 20120625
  Transmission Date: 20120825
  Serious: Yes (Hospitalization)
  Sender: FDA-Public Use
  Company Number: US-BAYER-2012-063857

PATIENT
  Age: 23 Year
  Sex: Female
  Weight: 57.143 kg

DRUGS (7)
  1. YASMIN [Suspect]
     Dosage: UNK
  2. HYDROCODONE BITARTRATE + ACETAMINOPHEN [Concomitant]
     Dosage: UNK
  3. DOXYCYCLINE [Concomitant]
     Dosage: 100 MG, UNK
  4. IBUPROFEN [Concomitant]
     Dosage: 800 MG, UNK
  5. DROSPIRENONE AND ETHINYL ESTRADIOL [Suspect]
     Dosage: UNK
  6. AMOXICILLIN [Concomitant]
     Dosage: 875 MG, UNK
  7. METRONIDAZOLE [Concomitant]
     Dosage: 500 MG, UNK

REACTIONS (1)
  - DEEP VEIN THROMBOSIS [None]
